APPROVED DRUG PRODUCT: AMLODIPINE AND OLMESARTAN MEDOXOMIL
Active Ingredient: AMLODIPINE BESYLATE; OLMESARTAN MEDOXOMIL
Strength: EQ 5MG BASE;40MG
Dosage Form/Route: TABLET;ORAL
Application: A209042 | Product #002 | TE Code: AB
Applicant: ALKEM LABORATORIES LTD
Approved: Aug 14, 2017 | RLD: No | RS: No | Type: RX